FAERS Safety Report 23330800 (Version 1)
Quarter: 2023Q4

REPORT INFORMATION
  Report Type: Report from Study
  Country: JP (occurrence: JP)
  Receive Date: 20231222
  Receipt Date: 20231222
  Transmission Date: 20240110
  Serious: Yes (Other)
  Sender: FDA-Public Use
  Company Number: JP-CELLTRION INC.-2020JP024592

PATIENT

DRUGS (13)
  1. INFLIXIMAB-DYYB [Suspect]
     Active Substance: INFLIXIMAB-DYYB
     Indication: Colitis ulcerative
     Dosage: 340 MG (WT:68.1KG)
     Route: 041
     Dates: start: 20181204, end: 20181204
  2. INFLIXIMAB-DYYB [Suspect]
     Active Substance: INFLIXIMAB-DYYB
     Indication: Crohn^s disease
     Dosage: 340 MG (WEIGHT: 68.4 KG)
     Route: 041
     Dates: start: 20190128, end: 20190128
  3. INFLIXIMAB-DYYB [Suspect]
     Active Substance: INFLIXIMAB-DYYB
     Dosage: 340 MG (WEIGHT: 67.8 KG)
     Route: 041
     Dates: start: 20190323, end: 20190323
  4. INFLIXIMAB-DYYB [Suspect]
     Active Substance: INFLIXIMAB-DYYB
     Dosage: 345 MG (WEIGHT: 68.8 KG)
     Route: 041
     Dates: start: 20190514, end: 20190514
  5. INFLIXIMAB-DYYB [Suspect]
     Active Substance: INFLIXIMAB-DYYB
     Dosage: 355 MG (WT: 71KG)
     Route: 041
     Dates: start: 20191106, end: 20191106
  6. INFLIXIMAB-DYYB [Suspect]
     Active Substance: INFLIXIMAB-DYYB
     Dosage: 355 MG (WEIGHT: 70.8 KG)
     Route: 041
     Dates: start: 20201210, end: 20201210
  7. INFLIXIMAB-DYYB [Suspect]
     Active Substance: INFLIXIMAB-DYYB
     Dosage: 350 MILLIGRAM (WEIGHT: 70KG)
     Route: 041
     Dates: start: 20211205, end: 20211205
  8. INFLIXIMAB-DYYB [Suspect]
     Active Substance: INFLIXIMAB-DYYB
     Dosage: 360 MILLIGRAM (WEIGHT: 72KGS)
     Route: 041
     Dates: start: 20221218, end: 20221218
  9. INFLIXIMAB-DYYB [Suspect]
     Active Substance: INFLIXIMAB-DYYB
     Dosage: 360 MILLIGRAM (WEIGHT: 72.3KG)
     Route: 041
     Dates: start: 20231210, end: 20231210
  10. MESALAMINE [Concomitant]
     Active Substance: MESALAMINE
     Dosage: 2000 MG, DAILY
     Route: 048
  11. SULFASALAZINE [Concomitant]
     Active Substance: SULFASALAZINE
     Dosage: 1500 MG, DAILY
     Route: 048
  12. AZATHIOPRINE [Concomitant]
     Active Substance: AZATHIOPRINE
     Indication: Crohn^s disease
     Dosage: 50 MG, DAILY
     Route: 048
     Dates: start: 20161229, end: 20200624
  13. AZATHIOPRINE [Concomitant]
     Active Substance: AZATHIOPRINE
     Dosage: 25 MG, DAILY
     Route: 048
     Dates: start: 20200720

REACTIONS (7)
  - Cirrhosis alcoholic [Not Recovered/Not Resolved]
  - Inborn error of bilirubin metabolism [Not Recovered/Not Resolved]
  - Hypertension [Not Recovered/Not Resolved]
  - Intentional product use issue [Unknown]
  - Intentional product use issue [Unknown]
  - Intentional product use issue [Unknown]
  - Underdose [Unknown]

NARRATIVE: CASE EVENT DATE: 20191205
